FAERS Safety Report 24022301 (Version 2)
Quarter: 2024Q3

REPORT INFORMATION
  Report Type: Report from Study
  Country: CA (occurrence: CA)
  Receive Date: 20240627
  Receipt Date: 20240710
  Transmission Date: 20241016
  Serious: No
  Sender: ROCHE
  Company Number: CA-ROCHE-3526344

PATIENT
  Age: 80 Year
  Sex: Male

DRUGS (1)
  1. VABYSMO [Suspect]
     Active Substance: FARICIMAB\FARICIMAB-SVOA
     Indication: Neovascular age-related macular degeneration
     Route: 065
     Dates: start: 20240220

REACTIONS (1)
  - Foreign body in eye [Unknown]
